FAERS Safety Report 7687362-7 (Version None)
Quarter: 2011Q3

REPORT INFORMATION
  Report Type: 
  Country: None (occurrence: None)
  Receive Date: 20110816
  Receipt Date: 20110803
  Transmission Date: 20111222
  Serious: Yes (Other)
  Sender: FDA-Public Use
  Company Number: US-BAYER-200829333NA

PATIENT
  Sex: Male
  Weight: 82 kg

DRUGS (52)
  1. GADOLINIUM IN UNSPECIFIED DRUG [Suspect]
     Indication: NUCLEAR MAGNETIC RESONANCE IMAGING
     Dates: start: 20050304, end: 20050304
  2. ARANESP [Concomitant]
  3. CELLCEPT [Concomitant]
     Dosage: DAILY DOSE 500 MG
  4. COZAAR [Concomitant]
     Dosage: 50 MG, QD
  5. INDERAL [Concomitant]
  6. DEMADEX [Concomitant]
  7. MULTIHANCE [Suspect]
     Indication: NUCLEAR MAGNETIC RESONANCE IMAGING
  8. VISIPAQUE [Suspect]
     Indication: ANGIOPLASTY
     Dosage: 100 ML, UNK
     Dates: start: 20050315
  9. GADOLINIUM IN UNSPECIFIED DRUG [Suspect]
     Dosage: UNK
     Dates: start: 19901213
  10. GADOLINIUM IN UNSPECIFIED DRUG [Suspect]
     Dosage: UNK
     Dates: start: 20010904
  11. GADOLINIUM IN UNSPECIFIED DRUG [Suspect]
     Dosage: UNK
     Dates: start: 20040504
  12. GADOLINIUM IN UNSPECIFIED DRUG [Suspect]
     Dosage: UNK
     Dates: start: 20050304
  13. RENAGEL [Concomitant]
  14. COREG [Concomitant]
     Dosage: 3.125 MG, BID
  15. PIOGLITAZONE [Concomitant]
     Dosage: 45 MG, QD
  16. GABAPENTIN [Concomitant]
     Dosage: 300 MG, QD
  17. MAGNEVIST [Suspect]
     Indication: ANGIOGRAM
     Dosage: UNK
     Dates: start: 20050304, end: 20050304
  18. PLAVIX [Concomitant]
     Dosage: DAILY DOSE 75 MG
  19. NEPHROVITE [VIT C,VIT H,B5,B12,B9,B3,B6,B2,B1 HCL] [Concomitant]
  20. PROGRAF [Concomitant]
     Dosage: 0.5 MG, BID
  21. IMDUR [Concomitant]
  22. MAGNEVIST [Suspect]
     Indication: NUCLEAR MAGNETIC RESONANCE IMAGING
     Dosage: UNK
     Dates: start: 20040504, end: 20040504
  23. GADOLINIUM IN UNSPECIFIED DRUG [Suspect]
     Dosage: UNK
     Dates: start: 20001026
  24. JANUVIA [Concomitant]
     Dosage: 100 MG, QD
  25. NOVOLOG MIX 70/30 [Concomitant]
  26. DIOVAN [Concomitant]
  27. IRON SUPPLEMENT [Concomitant]
  28. AMBIEN [Concomitant]
  29. LOPRESSOR [Concomitant]
  30. DILTIAZEM [Concomitant]
  31. PROHANCE [Suspect]
  32. GADOLINIUM IN UNSPECIFIED DRUG [Suspect]
     Dosage: UNK
     Dates: start: 20031116
  33. PREDNISONE [Concomitant]
     Dosage: DAILY DOSE 5 MG
  34. LIPITOR [Concomitant]
     Dosage: 40 MG, QD
  35. LASIX [Concomitant]
     Dosage: 40 MG, BID
  36. STARLIX [Concomitant]
  37. AVAPRO [Concomitant]
  38. OPTIMARK [Suspect]
     Indication: NUCLEAR MAGNETIC RESONANCE IMAGING
  39. GADOLINIUM IN UNSPECIFIED DRUG [Suspect]
     Dosage: UNK
     Dates: start: 20030402
  40. GADOLINIUM IN UNSPECIFIED DRUG [Suspect]
     Dosage: UNK
     Dates: start: 20050315
  41. ASPIRIN [Concomitant]
     Dosage: 81 MG, QD
  42. MAGNEVIST [Suspect]
     Indication: ANGIOPLASTY
     Dosage: 80 ML, UNK
     Dates: start: 20050315
  43. OMNISCAN [Suspect]
     Indication: NUCLEAR MAGNETIC RESONANCE IMAGING
     Dosage: 20 ML, UNK
     Dates: start: 20030402, end: 20110402
  44. OMNISCAN [Suspect]
     Indication: ANGIOGRAM
     Dosage: UNK
     Dates: start: 20040504, end: 20040504
  45. ASPIRIN [Concomitant]
  46. FLOMAX [Concomitant]
  47. METOPROLOL TARTRATE [Concomitant]
  48. PROHANCE [Suspect]
     Indication: NUCLEAR MAGNETIC RESONANCE IMAGING
     Dosage: 19 ML, UNK
     Dates: start: 20031116
  49. GADOLINIUM IN UNSPECIFIED DRUG [Suspect]
     Dosage: UNK
     Dates: start: 20031010
  50. NEURONTIN [Concomitant]
  51. ALLOPURINOL [Concomitant]
  52. RANEXA [Concomitant]
     Dosage: 500 MG, QD

REACTIONS (10)
  - NEPHROGENIC SYSTEMIC FIBROSIS [None]
  - MOBILITY DECREASED [None]
  - GENERAL PHYSICAL HEALTH DETERIORATION [None]
  - BONE PAIN [None]
  - PAIN [None]
  - EMOTIONAL DISTRESS [None]
  - MUSCULAR WEAKNESS [None]
  - RENAL FAILURE CHRONIC [None]
  - INJURY [None]
  - ANXIETY [None]
